FAERS Safety Report 24850900 (Version 1)
Quarter: 2025Q1

REPORT INFORMATION
  Report Type: Report from Study
  Country: GB (occurrence: GB)
  Receive Date: 20250116
  Receipt Date: 20250116
  Transmission Date: 20250408
  Serious: Yes (Hospitalization, Other)
  Sender: NOVARTIS
  Company Number: GB-002147023-NVSC2024GB218498

PATIENT
  Age: 49 Year
  Sex: Male

DRUGS (1)
  1. KESIMPTA [Suspect]
     Active Substance: OFATUMUMAB
     Indication: Multiple sclerosis
     Dosage: 20 MG, QMO
     Route: 058

REACTIONS (6)
  - Fall [Not Recovered/Not Resolved]
  - Gait inability [Unknown]
  - Multiple sclerosis relapse [Unknown]
  - Mobility decreased [Not Recovered/Not Resolved]
  - White blood cell disorder [Unknown]
  - Viral infection [Recovered/Resolved]

NARRATIVE: CASE EVENT DATE: 20241101
